FAERS Safety Report 5850594-4 (Version None)
Quarter: 2008Q3

REPORT INFORMATION
  Report Type: 
  Country: None (occurrence: None)
  Receive Date: 20080818
  Receipt Date: 20080801
  Transmission Date: 20090109
  Serious: Yes (Hospitalization)
  Sender: FDA-Public Use
  Company Number: 2008BI017519

PATIENT
  Age: 45 Year
  Sex: Male

DRUGS (1)
  1. TYSABRI [Suspect]
     Indication: MULTIPLE SCLEROSIS
     Dosage: 300 MG; QM; IV
     Route: 042
     Dates: start: 20070102

REACTIONS (5)
  - APPENDICITIS PERFORATED [None]
  - FLANK PAIN [None]
  - HYPERVENTILATION [None]
  - LIVER ABSCESS [None]
  - PULMONARY EMBOLISM [None]
